FAERS Safety Report 7069035-7 (Version None)
Quarter: 2010Q4

REPORT INFORMATION
  Report Type: 
  Country: None (occurrence: None)
  Receive Date: 20101028
  Receipt Date: 20101022
  Transmission Date: 20110411
  Serious: Yes (Life-Threatening, Other)
  Sender: FDA-Public Use
  Company Number: JP-GENENTECH-300666

PATIENT
  Sex: Male

DRUGS (11)
  1. RITUXAN [Suspect]
     Indication: MALIGNANT MELANOMA
     Dosage: 610 MG, UNK
     Route: 042
     Dates: start: 20081030, end: 20081120
  2. RITUXAN [Suspect]
     Dosage: 620 MG, UNK
     Route: 042
     Dates: start: 20081211, end: 20090113
  3. CYCLOPHOSPHAMIDE [Concomitant]
     Indication: DIFFUSE LARGE B-CELL LYMPHOMA
     Dosage: 1200 MG, UNK
     Route: 042
     Dates: start: 20081010, end: 20090114
  4. DOXORUBICIN HYDROCHLORIDE [Concomitant]
     Indication: DIFFUSE LARGE B-CELL LYMPHOMA
     Dosage: 51 MG, UNK
     Route: 042
     Dates: start: 20081010, end: 20090114
  5. VINCRISTINE SULFATE [Concomitant]
     Indication: DIFFUSE LARGE B-CELL LYMPHOMA
     Dosage: 2 MG, UNK
     Route: 042
     Dates: start: 20081010, end: 20090114
  6. PREDNISOLONE [Concomitant]
     Indication: DIFFUSE LARGE B-CELL LYMPHOMA
     Dosage: 100 MG, UNK
     Route: 048
     Dates: start: 20081010, end: 20090114
  7. ETOPOSIDE [Concomitant]
     Indication: STEM CELL TRANSPLANT
  8. METHYLPREDNISOLONE [Concomitant]
     Indication: STEM CELL TRANSPLANT
  9. CYTARABINE [Concomitant]
     Indication: STEM CELL TRANSPLANT
  10. CISPLATIN [Concomitant]
     Indication: STEM CELL TRANSPLANT
  11. RANIMUSTINE [Concomitant]
     Indication: STEM CELL TRANSPLANT

REACTIONS (4)
  - ACINETOBACTER BACTERAEMIA [None]
  - HISTIOCYTOSIS HAEMATOPHAGIC [None]
  - PSEUDOMONAL SEPSIS [None]
  - STAPHYLOCOCCAL SEPSIS [None]
